FAERS Safety Report 5618282-7 (Version None)
Quarter: 2008Q1

REPORT INFORMATION
  Report Type: 
  Country: None (occurrence: None)
  Receive Date: 20080206
  Receipt Date: 20080206
  Transmission Date: 20080703
  Serious: Yes (Other)
  Sender: FDA-Public Use
  Company Number: None

PATIENT
  Sex: Male
  Weight: 113.4 kg

DRUGS (16)
  1. AZACTAM [Suspect]
     Indication: OTITIS EXTERNA
     Dosage: 2GM  EVERY 8 HOURS  IV BOLUS
     Route: 040
     Dates: start: 20080126, end: 20080129
  2. METFORMIN HCL [Concomitant]
  3. COLACE [Concomitant]
  4. ASPIRIN [Concomitant]
  5. AMLODIPINE BESYLATE [Concomitant]
  6. OXYBUTYNIN CHLORIDE [Concomitant]
  7. AMITRIPTYLINE HCL [Concomitant]
  8. SIMVASTATIN [Concomitant]
  9. GABAPENTIN [Concomitant]
  10. LISINOPRIL [Concomitant]
  11. AVANDIA [Concomitant]
  12. GLYBURIDE [Concomitant]
  13. CIPRODEX [Concomitant]
  14. LORTAB [Concomitant]
  15. BENADRYL [Concomitant]
  16. LEVITRA [Concomitant]

REACTIONS (1)
  - OESOPHAGEAL PAIN [None]
